FAERS Safety Report 9588377 (Version 1)
Quarter: 2013Q4

REPORT INFORMATION
  Report Type: Spontaneous
  Country: US (occurrence: US)
  Receive Date: 20131003
  Receipt Date: 20131003
  Transmission Date: 20140711
  Serious: No
  Sender: FDA-Public Use
  Company Number: US-AMGEN-USASP2012063909

PATIENT
  Sex: Female

DRUGS (5)
  1. ENBREL [Suspect]
     Indication: PRODUCT USED FOR UNKNOWN INDICATION
     Dosage: 50 MG, QWK
  2. DIOVAN [Concomitant]
     Dosage: 160 MG, UNK
  3. ASPIRIN E.C [Concomitant]
     Dosage: 81 MG, UNK
  4. FISH OIL [Concomitant]
     Dosage: UNK
  5. CALCIUM [Concomitant]
     Dosage: 500 UNK, UNK

REACTIONS (4)
  - Influenza like illness [Unknown]
  - Fatigue [Unknown]
  - Flushing [Unknown]
  - Sinusitis [Unknown]
